FAERS Safety Report 4377209-9 (Version None)
Quarter: 2004Q2

REPORT INFORMATION
  Report Type: 
  Country: None (occurrence: None)
  Receive Date: 20040609
  Receipt Date: 20040325
  Transmission Date: 20050107
  Serious: No
  Sender: FDA-Public Use
  Company Number: 2004197698US

PATIENT
  Age: 88 Year
  Sex: Female

DRUGS (8)
  1. BEXTRA [Suspect]
     Indication: OSTEOARTHRITIS
     Dosage: 10 MG, QD
     Dates: start: 20040203, end: 20040205
  2. NEURONTIN [Concomitant]
  3. PRINIVIL [Concomitant]
  4. ASPIRIN [Concomitant]
  5. MULTIVITAMIN [Concomitant]
  6. CENTRUM (VITAMINS NOS) [Concomitant]
  7. VITAMIN E [Concomitant]
  8. NEXIUM [Concomitant]

REACTIONS (3)
  - BALANCE DISORDER [None]
  - FEELING ABNORMAL [None]
  - HEADACHE [None]
